FAERS Safety Report 7655150-3 (Version None)
Quarter: 2011Q3

REPORT INFORMATION
  Report Type: 
  Country: None (occurrence: None)
  Receive Date: 20110804
  Receipt Date: 20110323
  Transmission Date: 20111222
  Serious: No
  Sender: FDA-Public Use
  Company Number: US-PFIZER INC-2011168508

PATIENT
  Sex: Female

DRUGS (1)
  1. ADVIL LIQUI-GELS [Suspect]
     Dosage: 200 MG, UNKNOWN

REACTIONS (2)
  - DRUG INEFFECTIVE [None]
  - CIRCUMSTANCE OR INFORMATION CAPABLE OF LEADING TO MEDICATION ERROR [None]
